FAERS Safety Report 13027178 (Version 1)
Quarter: 2016Q4

REPORT INFORMATION
  Report Type: Spontaneous
  Country: BR (occurrence: BR)
  Receive Date: 20161214
  Receipt Date: 20161214
  Transmission Date: 20170207
  Serious: Yes (Disabling, Congenital Anomaly)
  Sender: FDA-Public Use
  Company Number: BR-SA-2016SA222347

PATIENT

DRUGS (2)
  1. CHLOROQUINE. [Suspect]
     Active Substance: CHLOROQUINE
     Indication: PLASMODIUM FALCIPARUM INFECTION
     Route: 064
  2. GENTAMICIN. [Suspect]
     Active Substance: GENTAMICIN
     Route: 064

REACTIONS (5)
  - Deafness [Unknown]
  - Auditory neuropathy spectrum disorder [Unknown]
  - Foetal exposure during pregnancy [Unknown]
  - Otoacoustic emissions test abnormal [Unknown]
  - Brain stem auditory evoked response abnormal [Unknown]
